FAERS Safety Report 24177196 (Version 2)
Quarter: 2024Q4

REPORT INFORMATION
  Report Type: Spontaneous
  Country: US (occurrence: US)
  Receive Date: 20240806
  Receipt Date: 20241024
  Transmission Date: 20250115
  Serious: Yes (Other)
  Sender: BIOGEN
  Company Number: US-BIOGEN-2024BI01276278

PATIENT
  Sex: Female

DRUGS (1)
  1. VUMERITY [Suspect]
     Active Substance: DIROXIMEL FUMARATE
     Indication: Multiple sclerosis
     Route: 050
     Dates: start: 20220221, end: 20221202

REACTIONS (13)
  - Diabetes mellitus [Unknown]
  - Memory impairment [Unknown]
  - Temperature intolerance [Unknown]
  - Agoraphobia [Unknown]
  - Bone disorder [Unknown]
  - Stress [Unknown]
  - Anxiety [Unknown]
  - Insomnia [Unknown]
  - Fall [Recovered/Resolved]
  - Pain in extremity [Unknown]
  - Gait disturbance [Unknown]
  - Pain [Unknown]
  - Multiple sclerosis relapse [Unknown]
